FAERS Safety Report 16827712 (Version 2)
Quarter: 2019Q3

REPORT INFORMATION
  Report Type: Spontaneous
  Country: JP (occurrence: JP)
  Receive Date: 20190919
  Receipt Date: 20190927
  Transmission Date: 20191005
  Serious: Yes (Other)
  Sender: FDA-Public Use
  Company Number: JP-ASTRAZENECA-2019SF00885

PATIENT
  Sex: Female

DRUGS (6)
  1. DAIKENCHUTO [Concomitant]
     Active Substance: HERBALS
     Indication: ILEUS
     Route: 048
     Dates: start: 20150609
  2. DOMPERIDONE [Concomitant]
     Active Substance: DOMPERIDONE
     Indication: OVARIAN CANCER
     Route: 048
     Dates: start: 20190703
  3. MAGMITT [Concomitant]
     Active Substance: MAGNESIUM OXIDE
     Indication: ILEUS
     Route: 048
     Dates: start: 20150203
  4. LYNPARZA [Suspect]
     Active Substance: OLAPARIB
     Indication: OVARIAN CANCER
     Route: 048
     Dates: start: 20190710
  5. LYNPARZA [Suspect]
     Active Substance: OLAPARIB
     Indication: OVARIAN CANCER
     Route: 048
     Dates: start: 20190703, end: 20190709
  6. LIXIANA OD [Concomitant]
     Active Substance: EDOXABAN TOSYLATE
     Indication: DEEP VEIN THROMBOSIS
     Route: 048
     Dates: start: 20170118

REACTIONS (1)
  - Renal impairment [Not Recovered/Not Resolved]

NARRATIVE: CASE EVENT DATE: 20190710
